FAERS Safety Report 14188316 (Version 2)
Quarter: 2017Q4

REPORT INFORMATION
  Report Type: Spontaneous
  Country: CN (occurrence: CN)
  Receive Date: 20171114
  Receipt Date: 20171201
  Transmission Date: 20180321
  Serious: Yes (Congenital Anomaly)
  Sender: FDA-Public Use
  Company Number: CN-OTSUKA-2017_024539

PATIENT
  Age: 72 Year
  Sex: Female

DRUGS (1)
  1. DACOGEN [Suspect]
     Active Substance: DECITABINE
     Indication: CHRONIC MYELOMONOCYTIC LEUKAEMIA
     Dosage: UNK (12 COURSES)
     Route: 065
     Dates: start: 201409, end: 201606

REACTIONS (3)
  - Megakaryocytes decreased [Unknown]
  - Thrombocytopenia [Recovered/Resolved]
  - Gene mutation [Unknown]
